FAERS Safety Report 4402088-0 (Version None)
Quarter: 2004Q3

REPORT INFORMATION
  Report Type: 
  Country: None (occurrence: None)
  Receive Date: 20040714
  Receipt Date: 20040706
  Transmission Date: 20050211
  Serious: Yes (Death, Hospitalization)
  Sender: FDA-Public Use
  Company Number: 2004211304US

PATIENT
  Age: 72 Year
  Sex: Female

DRUGS (6)
  1. ELLENCE [Suspect]
     Indication: BREAST CANCER
     Dosage: 70 MG, CYCLIC, Q21DAYS, IV
     Route: 042
     Dates: start: 20040303, end: 20040303
  2. CAMPTOSAR [Suspect]
     Indication: COLORECTAL CANCER
     Dosage: 140 MG, CYCLIC Q21DAYS, IV
     Route: 042
     Dates: start: 20040303, end: 20040303
  3. LOTENSIN [Concomitant]
  4. DURAGESIC [Concomitant]
  5. VICODIN [Concomitant]
  6. OXYCONTIN [Concomitant]

REACTIONS (12)
  - APHASIA [None]
  - CARDIAC ARREST [None]
  - CEREBROVASCULAR ACCIDENT [None]
  - DEPRESSED LEVEL OF CONSCIOUSNESS [None]
  - ELECTROCARDIOGRAM Q WAVES [None]
  - FACIAL PALSY [None]
  - HYPERKALAEMIA [None]
  - HYPONATRAEMIA [None]
  - MALIGNANT NEOPLASM PROGRESSION [None]
  - PANCREATIC CARCINOMA METASTATIC [None]
  - SINUS TACHYCARDIA [None]
  - WHITE BLOOD CELLS URINE [None]
